FAERS Safety Report 25378025 (Version 2)
Quarter: 2025Q3

REPORT INFORMATION
  Report Type: Report from Study
  Country: CA (occurrence: CA)
  Receive Date: 20250530
  Receipt Date: 20250701
  Transmission Date: 20251021
  Serious: Yes (Hospitalization, Other)
  Sender: ROCHE
  Company Number: CA-ROCHE-10000295315

PATIENT
  Age: 40 Year
  Sex: Female

DRUGS (11)
  1. ACTEMRA [Suspect]
     Active Substance: TOCILIZUMAB
     Indication: Rheumatoid arthritis
     Dosage: DRUG DOSE FIRST ADMINISTERED IS 689 MG MILLIGRAM(S)
     Route: 042
     Dates: start: 20110818, end: 20120110
  2. ACTEMRA [Suspect]
     Active Substance: TOCILIZUMAB
     Dosage: DRUG DOSE FIRST ADMINISTERED IS 800 MG MILLIGRAM(S)
     Route: 042
     Dates: start: 20120214, end: 20181031
  3. ACTEMRA [Suspect]
     Active Substance: TOCILIZUMAB
     Dosage: DRUG DOSE FIRST ADMINISTERED IS 720 MG MILLIGRAM(S)
     Route: 042
     Dates: start: 20181127, end: 20190408
  4. ACTEMRA [Suspect]
     Active Substance: TOCILIZUMAB
     Route: 042
     Dates: start: 20190624
  5. DICLOFENAC [Concomitant]
     Active Substance: DICLOFENAC
  6. FOLIC ACID [Concomitant]
     Active Substance: FOLIC ACID
  7. IRON [Concomitant]
     Active Substance: IRON
     Route: 048
  8. LEFLUNOMIDE [Concomitant]
     Active Substance: LEFLUNOMIDE
  9. METHOTREXATE [Concomitant]
     Active Substance: METHOTREXATE
  10. VITAMINS [Concomitant]
     Active Substance: VITAMINS
  11. TYLENOL WITH CODEINE [Concomitant]
     Active Substance: ACETAMINOPHEN\CODEINE PHOSPHATE

REACTIONS (2)
  - Cardiac disorder [Unknown]
  - Atrial fibrillation [Not Recovered/Not Resolved]

NARRATIVE: CASE EVENT DATE: 20250501
